FAERS Safety Report 25037057 (Version 1)
Quarter: 2025Q1

REPORT INFORMATION
  Report Type: Spontaneous
  Country: CN (occurrence: CN)
  Receive Date: 20250304
  Receipt Date: 20250304
  Transmission Date: 20250408
  Serious: Yes (Hospitalization, Other)
  Sender: PFIZER
  Company Number: CN-PFIZER INC-PV202500018989

PATIENT
  Age: 39 Year
  Sex: Male

DRUGS (6)
  1. XYNTHA [Suspect]
     Active Substance: MOROCTOCOG ALFA
     Indication: Prophylaxis
     Dosage: 1000 IU, 2X/WEEK
     Route: 040
     Dates: start: 20240427
  2. XYNTHA [Suspect]
     Active Substance: MOROCTOCOG ALFA
     Dosage: 1000 IU, 2X/WEEK
     Route: 040
     Dates: start: 20240428
  3. XYNTHA [Suspect]
     Active Substance: MOROCTOCOG ALFA
     Dosage: 1000 IU, ALTERNATE DAY
     Route: 040
     Dates: start: 20240620
  4. XYNTHA [Suspect]
     Active Substance: MOROCTOCOG ALFA
     Dosage: 2000 IU, ALTERNATE DAY
     Route: 040
     Dates: start: 20240716
  5. XYNTHA [Suspect]
     Active Substance: MOROCTOCOG ALFA
     Dosage: 2000 IU, ALTERNATE DAY
     Route: 040
     Dates: start: 20241211
  6. XYNTHA [Suspect]
     Active Substance: MOROCTOCOG ALFA
     Dosage: 2000 IU, 1X/DAY
     Route: 042
     Dates: start: 20241231

REACTIONS (7)
  - Joint arthroplasty [Unknown]
  - Ecchymosis [Unknown]
  - Joint swelling [Unknown]
  - Skin temperature increased [Unknown]
  - Joint range of motion decreased [Unknown]
  - Off label use [Unknown]
  - Product preparation error [Unknown]

NARRATIVE: CASE EVENT DATE: 20241231
